FAERS Safety Report 20909034 (Version 1)
Quarter: 2022Q2

REPORT INFORMATION
  Report Type: Report from Study
  Country: BE (occurrence: BE)
  Receive Date: 20220603
  Receipt Date: 20220603
  Transmission Date: 20220720
  Serious: Yes (Other)
  Sender: FDA-Public Use
  Company Number: BE-BRISTOL-MYERS SQUIBB COMPANY-2022-040181

PATIENT
  Age: 61 Year
  Sex: Male

DRUGS (4)
  1. OPDIVO [Suspect]
     Active Substance: NIVOLUMAB
     Indication: Metastases to liver
     Route: 042
     Dates: start: 20220412
  2. OPDIVO [Suspect]
     Active Substance: NIVOLUMAB
     Indication: Malignant melanoma
     Route: 042
     Dates: start: 20220517
  3. YERVOY [Suspect]
     Active Substance: IPILIMUMAB
     Indication: Malignant melanoma
     Route: 042
     Dates: start: 20220412
  4. YERVOY [Suspect]
     Active Substance: IPILIMUMAB
     Indication: Metastases to liver

REACTIONS (6)
  - Hyperthyroidism [Recovering/Resolving]
  - Diarrhoea [Recovering/Resolving]
  - Thyroiditis [Unknown]
  - Hallucination [Unknown]
  - Dry skin [Not Recovered/Not Resolved]
  - Oral fungal infection [Recovered/Resolved]
